FAERS Safety Report 9472135 (Version 2)
Quarter: 2013Q3

REPORT INFORMATION
  Report Type: Spontaneous
  Country: AU (occurrence: AU)
  Receive Date: 20130823
  Receipt Date: 20130926
  Transmission Date: 20140515
  Serious: Yes (Other)
  Sender: FDA-Public Use
  Company Number: AU-BRISTOL-MYERS SQUIBB COMPANY-19189018

PATIENT
  Age: 68 Year
  Sex: Male

DRUGS (16)
  1. BYETTA [Suspect]
     Dates: start: 2008, end: 2010
  2. ASTRIX [Concomitant]
     Route: 048
     Dates: start: 20120130
  3. CYMBALTA [Concomitant]
     Route: 048
     Dates: start: 20121128
  4. HUMALOG [Concomitant]
     Dosage: 1DF:100 UNITS/ML
     Route: 058
     Dates: start: 20120731
  5. LACTULOSE [Concomitant]
     Route: 048
     Dates: start: 20121107
  6. LEVEMIR [Concomitant]
     Dosage: 1DF:100UNITS/ML
     Route: 058
     Dates: start: 20120130
  7. MICARDIS [Concomitant]
     Route: 048
     Dates: start: 20121115
  8. NASONEX [Concomitant]
     Route: 045
     Dates: start: 20120712
  9. ONDANSETRON [Concomitant]
     Route: 048
     Dates: start: 20121011
  10. PANAMAX [Concomitant]
     Route: 048
     Dates: start: 20121102
  11. PANTOPRAZOLE [Concomitant]
     Route: 048
     Dates: start: 20121115
  12. TEMAZE [Concomitant]
     Route: 048
     Dates: start: 20121128
  13. UREMIDE [Concomitant]
     Route: 048
     Dates: start: 20120926
  14. VENTOLIN [Concomitant]
     Dates: start: 20111004
  15. FLUVAX [Concomitant]
     Dates: start: 20070413
  16. INFLUVAC [Concomitant]
     Dates: start: 20100420

REACTIONS (1)
  - Pancreatic carcinoma metastatic [Unknown]
